FAERS Safety Report 4313000-7 (Version None)
Quarter: 2004Q1

REPORT INFORMATION
  Report Type: 
  Country: None (occurrence: None)
  Receive Date: 20040305
  Receipt Date: 20040305
  Transmission Date: 20041129
  Serious: Yes (Hospitalization)
  Sender: FDA-Public Use
  Company Number: None

PATIENT
  Sex: Male
  Weight: 56.6 kg

DRUGS (1)
  1. CITALOPRAM [Suspect]
     Indication: DEPRESSION
     Dosage: 20 MG QD ORAL
     Route: 048
     Dates: start: 19991231, end: 20040125

REACTIONS (4)
  - ANAEMIA [None]
  - FAILURE TO THRIVE [None]
  - HYPONATRAEMIA [None]
  - WEIGHT DECREASED [None]
